FAERS Safety Report 9297658 (Version 1)
Quarter: 2013Q2

REPORT INFORMATION
  Report Type: Spontaneous
  Country: US (occurrence: None)
  Receive Date: 20130517
  Receipt Date: 20130517
  Transmission Date: 20140414
  Serious: Yes (Other)
  Sender: FDA-Public Use
  Company Number: None

PATIENT
  Age: 37 Year
  Sex: Male
  Weight: 81.65 kg

DRUGS (2)
  1. RISPERIDONE [Suspect]
     Indication: DEPRESSION
     Dates: start: 20110310, end: 20110318
  2. LEXAPRO [Suspect]
     Indication: ATTENTION DEFICIT/HYPERACTIVITY DISORDER
     Dates: start: 20110310, end: 20130318

REACTIONS (6)
  - Imprisonment [None]
  - Feeling abnormal [None]
  - Fear [None]
  - Dyspnoea [None]
  - Incorrect dose administered [None]
  - Anxiety [None]
